FAERS Safety Report 6614461-0 (Version None)
Quarter: 2010Q1

REPORT INFORMATION
  Report Type: 
  Country: None (occurrence: None)
  Receive Date: 20100304
  Receipt Date: 20100304
  Transmission Date: 20100710
  Serious: Yes (Hospitalization)
  Sender: FDA-Public Use
  Company Number: None

PATIENT
  Age: 66 Year
  Sex: Male
  Weight: 112.49 kg

DRUGS (2)
  1. DOXAZOSIN [Suspect]
     Indication: BENIGN PROSTATIC HYPERPLASIA
     Dosage: 8 MG HS PO
     Route: 048
     Dates: start: 20070305
  2. LISINOPRIL [Suspect]
     Indication: CARDIAC FAILURE CONGESTIVE
     Dosage: 10 MG EVERY DAY PO
     Route: 048
     Dates: start: 20070508

REACTIONS (3)
  - FATIGUE [None]
  - HYPOTENSION [None]
  - LUNG INFILTRATION [None]
